FAERS Safety Report 17126500 (Version 1)
Quarter: 2019Q4

REPORT INFORMATION
  Report Type: Spontaneous
  Country: US (occurrence: US)
  Receive Date: 20191209
  Receipt Date: 20191209
  Transmission Date: 20200122
  Serious: No
  Sender: FDA-Public Use
  Company Number: US-UCBSA-2017014365

PATIENT
  Sex: Male

DRUGS (4)
  1. MIDAZOLAM [Concomitant]
     Active Substance: MIDAZOLAM HYDROCHLORIDE
     Indication: SEIZURE
     Dosage: UNKNOWN DOSE
  2. FOSPHENYTOIN [Concomitant]
     Active Substance: FOSPHENYTOIN
     Indication: SEIZURE
     Dosage: UNKNOWN DOSE
  3. LEVETIRACETAM. [Suspect]
     Active Substance: LEVETIRACETAM
     Indication: SEIZURE
     Dosage: UNKNOWN DOSE
  4. PHENOBARBITAL. [Concomitant]
     Active Substance: PHENOBARBITAL
     Indication: SEIZURE
     Dosage: UNKNOWN DOSE

REACTIONS (3)
  - Epilepsy [Recovered/Resolved]
  - Developmental delay [Unknown]
  - Off label use [Unknown]
